FAERS Safety Report 13573930 (Version 2)
Quarter: 2018Q1

REPORT INFORMATION
  Report Type: Report from Study
  Country: BR (occurrence: BR)
  Receive Date: 20170523
  Receipt Date: 20180109
  Transmission Date: 20180508
  Serious: Yes (Life-Threatening, Other)
  Sender: FDA-Public Use
  Company Number: PHHY2017BR075433

PATIENT
  Age: 58 Year
  Sex: Female
  Weight: 86 kg

DRUGS (4)
  1. SANDOSTATIN LAR DEPOT [Suspect]
     Active Substance: OCTREOTIDE ACETATE
     Indication: ACROMEGALY
     Dosage: 20 MG, QD
     Route: 030
  2. CLONAZEPAM. [Concomitant]
     Active Substance: CLONAZEPAM
     Indication: SLEEP DISORDER
     Dosage: 1 DF, QD
     Route: 048
  3. FLUOXETINA [Concomitant]
     Active Substance: FLUOXETINE HYDROCHLORIDE
     Indication: DEPRESSION
     Dosage: 2 DF, QD
  4. PURAN [Concomitant]
     Active Substance: LEVOTHYROXINE SODIUM
     Indication: HYPOTHYROIDISM
     Dosage: 1 DF, QD
     Route: 048

REACTIONS (13)
  - Nervousness [Unknown]
  - Glucose tolerance impaired [Recovering/Resolving]
  - Pain [Unknown]
  - Chikungunya virus infection [Recovered/Resolved]
  - Dengue fever [Unknown]
  - Headache [Unknown]
  - Crying [Unknown]
  - Visual impairment [Unknown]
  - Blood cholesterol increased [Recovering/Resolving]
  - Inappropriate schedule of drug administration [Unknown]
  - Feeling abnormal [Unknown]
  - Hyperthyroidism [Unknown]
  - Joint swelling [Unknown]

NARRATIVE: CASE EVENT DATE: 201705
